FAERS Safety Report 7965759-5 (Version None)
Quarter: 2011Q4

REPORT INFORMATION
  Report Type: 
  Country: None (occurrence: None)
  Receive Date: 20111208
  Receipt Date: 20111130
  Transmission Date: 20120403
  Serious: Yes (Hospitalization)
  Sender: FDA-Public Use
  Company Number: DE-TEVA-311571GER

PATIENT
  Age: 59 Year
  Sex: Male
  Weight: 71 kg

DRUGS (5)
  1. DEXA-CT [Suspect]
     Indication: LUNG NEOPLASM MALIGNANT
     Route: 048
     Dates: start: 20110429
  2. CISPLATIN [Suspect]
     Indication: LUNG NEOPLASM MALIGNANT
     Route: 042
     Dates: start: 20110411, end: 20110502
  3. GRANISETRON [Concomitant]
     Indication: LUNG NEOPLASM MALIGNANT
     Route: 042
     Dates: start: 20110411, end: 20110502
  4. EMEND [Concomitant]
     Indication: LUNG NEOPLASM MALIGNANT
     Route: 048
     Dates: start: 20110411, end: 20110505
  5. ALIMTA [Suspect]
     Indication: LUNG NEOPLASM MALIGNANT
     Route: 042
     Dates: start: 20110411, end: 20110502

REACTIONS (2)
  - THROMBOCYTOPENIA [None]
  - NEUTROPENIC SEPSIS [None]
